FAERS Safety Report 5903704-4 (Version None)
Quarter: 2008Q3

REPORT INFORMATION
  Report Type: 
  Country: None (occurrence: None)
  Receive Date: 20080930
  Receipt Date: 20080923
  Transmission Date: 20090109
  Serious: Yes (Other)
  Sender: FDA-Public Use
  Company Number: US-B.I. PHARMACEUTICALS,INC./RIDGEFIELD-2008-BP-14687BP

PATIENT
  Age: 61 Year
  Sex: Female

DRUGS (1)
  1. ZANTAC 150 [Suspect]
     Indication: ANTIALLERGIC THERAPY
     Dosage: 150MG
     Route: 048
     Dates: start: 20080921

REACTIONS (2)
  - ANGINA PECTORIS [None]
  - PHARYNGEAL OEDEMA [None]
